FAERS Safety Report 13796969 (Version 1)
Quarter: 2017Q3

REPORT INFORMATION
  Report Type: Spontaneous
  Country: IN (occurrence: IN)
  Receive Date: 20170726
  Receipt Date: 20170726
  Transmission Date: 20171127
  Serious: Yes (Hospitalization, Other)
  Sender: FDA-Public Use
  Company Number: IN-CIPLA LTD.-2017IN13056

PATIENT

DRUGS (3)
  1. ETHAMBUTOL [Suspect]
     Active Substance: ETHAMBUTOL HYDROCHLORIDE
     Indication: PULMONARY TUBERCULOSIS
     Dosage: 800 MG, UNK
     Route: 065
  2. ISONIAZID/ RIFAMPICIN [Suspect]
     Active Substance: ISONIAZID\RIFAMPIN
     Indication: PULMONARY TUBERCULOSIS
     Dosage: 300/450MG
     Route: 065
  3. LEVOFLOXACIN. [Suspect]
     Active Substance: LEVOFLOXACIN
     Indication: PULMONARY TUBERCULOSIS
     Dosage: 500 MG, DAILY
     Route: 065

REACTIONS (4)
  - Chorea [Recovering/Resolving]
  - Gait disturbance [Recovering/Resolving]
  - Neuropathy peripheral [Unknown]
  - Myoclonus [Recovering/Resolving]
